FAERS Safety Report 4381536-9 (Version None)
Quarter: 2004Q2

REPORT INFORMATION
  Report Type: 
  Country: None (occurrence: None)
  Receive Date: 20040616
  Receipt Date: 20040603
  Transmission Date: 20050107
  Serious: Yes (Hospitalization)
  Sender: FDA-Public Use
  Company Number: 2004037215

PATIENT
  Sex: Female
  Weight: 2.52 kg

DRUGS (1)
  1. ZOLOFT [Suspect]
     Indication: ANXIETY
     Dosage: 50 MG

REACTIONS (10)
  - APGAR SCORE LOW [None]
  - BLOOD PH DECREASED [None]
  - CONGENITAL NYSTAGMUS [None]
  - DRUG EXPOSURE DURING PREGNANCY [None]
  - HYPOTONIA NEONATAL [None]
  - NEONATAL DISORDER [None]
  - OXYGEN SATURATION DECREASED [None]
  - PREMATURE BABY [None]
  - RESPIRATION ABNORMAL [None]
  - SLEEP STUDY ABNORMAL [None]
